FAERS Safety Report 6164105-X (Version None)
Quarter: 2009Q2

REPORT INFORMATION
  Report Type: 
  Country: None (occurrence: None)
  Receive Date: 20090422
  Receipt Date: 20090413
  Transmission Date: 20091009
  Serious: Yes (Other)
  Sender: FDA-Public Use
  Company Number: B0549264A

PATIENT
  Age: 54 Year
  Sex: Male

DRUGS (2)
  1. COMBIVIR [Suspect]
     Indication: HIV INFECTION
     Route: 048
     Dates: start: 20010921, end: 20080521
  2. KALETRA [Suspect]
     Indication: HIV INFECTION
     Route: 048
     Dates: start: 20010921

REACTIONS (3)
  - ABNORMAL LOSS OF WEIGHT [None]
  - DRUG INTERACTION [None]
  - LIPODYSTROPHY ACQUIRED [None]
